FAERS Safety Report 8247620-4 (Version None)
Quarter: 2012Q1

REPORT INFORMATION
  Report Type: 
  Country: None (occurrence: None)
  Receive Date: 20120330
  Receipt Date: 20120320
  Transmission Date: 20120608
  Serious: Yes (Other)
  Sender: FDA-Public Use
  Company Number: US-CELGENEUS-163-21880-12032245

PATIENT
  Sex: Male
  Weight: 78.7 kg

DRUGS (21)
  1. ZOMETA [Concomitant]
     Indication: MULTIPLE MYELOMA
     Route: 041
  2. LEVAQUIN [Concomitant]
     Indication: LOBAR PNEUMONIA
     Route: 041
     Dates: start: 20120201
  3. IMODIUM [Concomitant]
     Dosage: 2 MILLIGRAM
     Route: 048
  4. REVLIMID [Suspect]
     Indication: MULTIPLE MYELOMA
     Dosage: 10 MILLIGRAM
     Route: 048
     Dates: start: 20080128, end: 20111017
  5. ACYCLOVIR [Concomitant]
     Indication: INFECTION PROPHYLAXIS
     Dosage: 400 MILLIGRAM
     Route: 048
     Dates: start: 20080101
  6. LEVAQUIN [Concomitant]
     Indication: OSTEOMYELITIS
     Route: 041
     Dates: start: 20110101
  7. VANCOMYCIN [Concomitant]
     Indication: LOBAR PNEUMONIA
     Route: 041
     Dates: start: 20120201
  8. ASPIRIN [Concomitant]
     Dosage: 81 MILLIGRAM
     Route: 048
     Dates: start: 20080312
  9. ACETAMINOPHEN-HYDROCODONE [Concomitant]
     Indication: BACK PAIN
     Dosage: 5MG-500MG
     Route: 048
  10. PROTONIX [Concomitant]
     Dosage: 40 MILLIGRAM
     Route: 048
  11. ACETAMINOPHEN-HYDROCODONE [Concomitant]
  12. VITAMIN B COMPLEX CAP [Concomitant]
     Dosage: 1 TABLET
     Route: 048
  13. CEFEPIME [Concomitant]
     Indication: LOBAR PNEUMONIA
     Route: 041
     Dates: start: 20120201
  14. DAPTOMYCIN [Concomitant]
     Indication: OSTEOMYELITIS
     Route: 041
     Dates: start: 20110101
  15. DEXAMETHASONE [Suspect]
     Indication: MULTIPLE MYELOMA
     Dosage: 10 MILLIGRAM
     Route: 065
     Dates: start: 20080101, end: 20110101
  16. TYLENOL [Concomitant]
     Dosage: 650 MILLIGRAM
     Route: 048
  17. MINOCYCLINE HCL [Concomitant]
     Indication: OSTEOMYELITIS
     Dosage: 100 MILLIGRAM
     Route: 048
     Dates: start: 20110101
  18. BORTEZOMIB [Suspect]
     Indication: MULTIPLE MYELOMA
     Dosage: 1 MILLIGRAM/SQ. METER
     Route: 065
     Dates: start: 20080101, end: 20110101
  19. FISH OIL [Concomitant]
     Dosage: 1200 MILLIGRAM
     Route: 048
  20. MINOCYCLINE HCL [Concomitant]
     Indication: LOBAR PNEUMONIA
     Route: 041
     Dates: start: 20120201
  21. MINOCYCLINE HCL [Concomitant]
     Dosage: 100 MILLIGRAM
     Route: 065
     Dates: start: 20120201

REACTIONS (1)
  - MYELODYSPLASTIC SYNDROME [None]
